FAERS Safety Report 8120011-2 (Version None)
Quarter: 2012Q1

REPORT INFORMATION
  Report Type: 
  Country: None (occurrence: None)
  Receive Date: 20120207
  Receipt Date: 20120127
  Transmission Date: 20120608
  Serious: Yes (Life-Threatening, Hospitalization)
  Sender: FDA-Public Use
  Company Number: DK-NOVOPROD-343865

PATIENT
  Age: 87 Year
  Sex: Female

DRUGS (2)
  1. METFORMIN HCL [Concomitant]
     Dosage: UNK
     Dates: start: 20090430, end: 20111227
  2. VICTOZA [Suspect]
     Indication: TYPE 2 DIABETES MELLITUS
     Dosage: UNKNOWN
     Route: 058
     Dates: start: 20111219, end: 20111220

REACTIONS (1)
  - DIABETIC KETOACIDOSIS [None]
